FAERS Safety Report 11434284 (Version 1)
Quarter: 2015Q3

REPORT INFORMATION
  Report Type: Spontaneous
  Country: US (occurrence: None)
  Receive Date: 20150828
  Receipt Date: 20150828
  Transmission Date: 20151125
  Serious: No
  Sender: FDA-Public Use
  Company Number: None

PATIENT
  Age: 69 Year
  Sex: Female

DRUGS (1)
  1. VOTRIENT [Suspect]
     Active Substance: PAZOPANIB HYDROCHLORIDE
     Indication: BENIGN NEOPLASM OF THYROID GLAND
     Dates: start: 20140814, end: 201508

REACTIONS (1)
  - Diarrhoea [None]

NARRATIVE: CASE EVENT DATE: 201508
